FAERS Safety Report 25806275 (Version 1)
Quarter: 2025Q3

REPORT INFORMATION
  Report Type: Spontaneous
  Country: CA (occurrence: CA)
  Receive Date: 20250916
  Receipt Date: 20250916
  Transmission Date: 20251020
  Serious: Yes (Hospitalization)
  Sender: ACCORD
  Company Number: None

PATIENT
  Age: 17 Year
  Sex: Female
  Weight: 29 kg

DRUGS (15)
  1. TOPIRAMATE [Suspect]
     Active Substance: TOPIRAMATE
     Indication: Product used for unknown indication
     Route: 048
  2. ACETAMINOPHEN [Concomitant]
     Active Substance: ACETAMINOPHEN
  3. ADVAIR HFA [Concomitant]
     Active Substance: FLUTICASONE PROPIONATE\SALMETEROL XINAFOATE
  4. CETIRIZINE [Concomitant]
     Active Substance: CETIRIZINE HYDROCHLORIDE
  5. CLOBAZAM [Concomitant]
     Active Substance: CLOBAZAM
  6. DESONIDE RPG [Concomitant]
  7. DIPHENHYDRAMINE [Concomitant]
     Active Substance: DIPHENHYDRAMINE
  8. GUANFACINE HYDROCHLORIDE [Concomitant]
     Active Substance: GUANFACINE HYDROCHLORIDE
  9. LEVOCARNITINE [Concomitant]
     Active Substance: LEVOCARNITINE
  10. MELATONIN [Concomitant]
     Active Substance: MELATONIN
  11. POLYETHYLENE GLYCOL [Concomitant]
     Active Substance: POLYETHYLENE GLYCOL
  12. PREDNISOLONE [Concomitant]
     Active Substance: PREDNISOLONE
  13. STIRIPENTOL [Concomitant]
     Active Substance: STIRIPENTOL
  14. THIAMINE [Concomitant]
     Active Substance: THIAMINE
  15. VALPROIC ACID [Concomitant]
     Active Substance: VALPROIC ACID

REACTIONS (5)
  - Pancytopenia [Recovered/Resolved]
  - Hyperammonaemia [Recovered/Resolved]
  - Starvation [Recovered/Resolved]
  - Bicytopenia [Recovered/Resolved]
  - General physical health deterioration [Recovered/Resolved]
